FAERS Safety Report 13332733 (Version 1)
Quarter: 2017Q1

REPORT INFORMATION
  Report Type: Spontaneous
  Country: US (occurrence: US)
  Receive Date: 20170314
  Receipt Date: 20170314
  Transmission Date: 20170428
  Serious: Yes (Other)
  Sender: FDA-Public Use
  Company Number: None

PATIENT
  Age: 9 Year
  Sex: Male
  Weight: 27.45 kg

DRUGS (3)
  1. MOTRIN [Concomitant]
     Active Substance: IBUPROFEN
  2. FLOVENT [Concomitant]
     Active Substance: FLUTICASONE PROPIONATE
  3. TAMIFLU [Suspect]
     Active Substance: OSELTAMIVIR PHOSPHATE
     Indication: INFLUENZA
     Dosage: ?          QUANTITY:10 ML;?
     Route: 048
     Dates: start: 20170313, end: 20170313

REACTIONS (10)
  - Conversion disorder [None]
  - Incoherent [None]
  - Speech disorder [None]
  - Abnormal behaviour [None]
  - Hallucination [None]
  - Muscle twitching [None]
  - Vision blurred [None]
  - Confusional state [None]
  - Seizure [None]
  - Body temperature increased [None]

NARRATIVE: CASE EVENT DATE: 20170313
